FAERS Safety Report 11155649 (Version 1)
Quarter: 2015Q2

REPORT INFORMATION
  Report Type: Spontaneous
  Country: GB (occurrence: GB)
  Receive Date: 20150602
  Receipt Date: 20150602
  Transmission Date: 20150821
  Serious: Yes (Other)
  Sender: FDA-Public Use
  Company Number: GB-ACTAVIS-2015-10824

PATIENT

DRUGS (1)
  1. CETIRIZINE (UNKNOWN) [Suspect]
     Active Substance: CETIRIZINE HYDROCHLORIDE
     Indication: PRODUCT USED FOR UNKNOWN INDICATION
     Dosage: 1 MG/ML, UNKNOWN (ORAL SOLUTION)
     Route: 048

REACTIONS (2)
  - Blood glucose increased [Unknown]
  - Product formulation issue [Unknown]
